APPROVED DRUG PRODUCT: METOCLOPRAMIDE HYDROCHLORIDE
Active Ingredient: METOCLOPRAMIDE HYDROCHLORIDE
Strength: EQ 10MG BASE
Dosage Form/Route: TABLET;ORAL
Application: A078374 | Product #002
Applicant: NORTHSTAR HEALTHCARE HOLDINGS LTD
Approved: Nov 30, 2007 | RLD: No | RS: No | Type: DISCN